FAERS Safety Report 5762892-3 (Version None)
Quarter: 2008Q2

REPORT INFORMATION
  Report Type: 
  Country: None (occurrence: None)
  Receive Date: 20080609
  Receipt Date: 20080603
  Transmission Date: 20081010
  Serious: Yes (Hospitalization)
  Sender: FDA-Public Use
  Company Number: US-ASTRAZENECA-2008UW10298

PATIENT
  Age: 40 Year
  Sex: Male

DRUGS (3)
  1. SYMBICORT [Suspect]
     Indication: ASTHMA
     Dosage: 160/4.5 UG BID
     Route: 055
     Dates: start: 20080401, end: 20080507
  2. ALBUTEROL [Concomitant]
     Indication: ASTHMA
     Route: 055
  3. STEROID [Concomitant]
     Route: 055

REACTIONS (4)
  - DIZZINESS [None]
  - FALL [None]
  - JOINT SPRAIN [None]
  - LOSS OF CONSCIOUSNESS [None]
